FAERS Safety Report 5309857-3 (Version None)
Quarter: 2007Q2

REPORT INFORMATION
  Report Type: 
  Country: None (occurrence: None)
  Receive Date: 20070427
  Receipt Date: 20070418
  Transmission Date: 20071010
  Serious: Yes (Other)
  Sender: FDA-Public Use
  Company Number: JP-ROCHE-488060

PATIENT
  Age: 4 Year
  Sex: Female

DRUGS (2)
  1. TAMIFLU [Suspect]
     Dosage: DRUG REPORTED AS: TAMIFLU DRY SYRUP 3%.
     Route: 048
     Dates: start: 20070313, end: 20070313
  2. ROCEPHIN [Concomitant]
     Dosage: DRUG REPORTED AS ROCEPHIN 1G BAG.
     Route: 041
     Dates: start: 20070313, end: 20070315

REACTIONS (1)
  - CONVULSION [None]
